FAERS Safety Report 4444406-3 (Version None)
Quarter: 2004Q3

REPORT INFORMATION
  Report Type: 
  Country: None (occurrence: None)
  Receive Date: 20040902
  Receipt Date: 20040812
  Transmission Date: 20050211
  Serious: Yes (Other)
  Sender: FDA-Public Use
  Company Number: US_0408104831

PATIENT
  Age: 26 Year
  Sex: Male

DRUGS (2)
  1. GEMZAR [Suspect]
     Indication: MESOTHELIOMA
     Dates: start: 20020101
  2. CISPLATIN [Concomitant]

REACTIONS (5)
  - ASCITES [None]
  - DEEP VEIN THROMBOSIS [None]
  - DISEASE RECURRENCE [None]
  - MESOTHELIOMA MALIGNANT [None]
  - THERAPY NON-RESPONDER [None]
